FAERS Safety Report 23573818 (Version 1)
Quarter: 2024Q1

REPORT INFORMATION
  Report Type: Spontaneous
  Country: FR (occurrence: FR)
  Receive Date: 20240228
  Receipt Date: 20240228
  Transmission Date: 20240410
  Serious: Yes (Other)
  Sender: FDA-Public Use
  Company Number: FR-AFSSAPS-AVNT2024000062

PATIENT
  Age: 40 Year
  Sex: Female

DRUGS (3)
  1. ACETAMINOPHEN [Suspect]
     Active Substance: ACETAMINOPHEN
     Indication: Product used for unknown indication
     Dosage: UNK,AT LEAST 1 TAB 1 TO 3 X/D
     Route: 048
     Dates: start: 2022
  2. CODEINE [Suspect]
     Active Substance: CODEINE
     Indication: Product used for unknown indication
     Dosage: UNK,AT LEAST 1 TAB 1 TO 3 X/D
     Route: 048
     Dates: start: 2022
  3. ACETAMINOPHEN\OPIUM [Suspect]
     Active Substance: ACETAMINOPHEN\OPIUM
     Indication: Product used for unknown indication
     Dosage: UNK,AT LEAST 1 CAPSULE 3X/D
     Route: 048
     Dates: start: 2023

REACTIONS (1)
  - Drug use disorder [Not Recovered/Not Resolved]
